FAERS Safety Report 11395624 (Version 2)
Quarter: 2017Q3

REPORT INFORMATION
  Report Type: Spontaneous
  Country: US (occurrence: US)
  Receive Date: 20150819
  Receipt Date: 20170803
  Transmission Date: 20171127
  Serious: Yes (Other)
  Sender: FDA-Public Use
  Company Number: US-JNJFOC-20150424348

PATIENT

DRUGS (1)
  1. RAZADYNE [Suspect]
     Active Substance: GALANTAMINE HYDROBROMIDE
     Indication: DEMENTIA ALZHEIMER^S TYPE
     Route: 048

REACTIONS (24)
  - Seizure [Unknown]
  - Insomnia [Unknown]
  - Pain [Unknown]
  - Rhinorrhoea [Unknown]
  - Headache [Unknown]
  - Muscle spasms [Unknown]
  - Tremor [Unknown]
  - Dizziness [Unknown]
  - Diarrhoea [Unknown]
  - Urinary incontinence [Unknown]
  - Dyspnoea [Unknown]
  - Heart rate irregular [Unknown]
  - Abdominal discomfort [Unknown]
  - Fatigue [Unknown]
  - Syncope [Unknown]
  - Wheezing [Unknown]
  - Arrhythmia [Unknown]
  - Nightmare [Unknown]
  - Rhinitis [Unknown]
  - Asthma [Unknown]
  - Anal incontinence [Unknown]
  - Poor quality sleep [Unknown]
  - Vomiting [Unknown]
  - Decreased appetite [Unknown]
